FAERS Safety Report 10090998 (Version 1)
Quarter: 2014Q2

REPORT INFORMATION
  Report Type: Report from Study
  Country: BR (occurrence: BR)
  Receive Date: 20140421
  Receipt Date: 20140421
  Transmission Date: 20141212
  Serious: Yes (Other)
  Sender: FDA-Public Use
  Company Number: PHHY2014BR048463

PATIENT
  Age: 76 Year
  Sex: Male

DRUGS (8)
  1. DIOVAN [Suspect]
     Dosage: 320 MG, UNK
  2. DIOVAN AMLO FIX [Suspect]
     Dosage: 1 DF, (320/5 MS)
  3. ADALAT [Concomitant]
     Dosage: 50 MG, UNK
  4. MANIVASC [Concomitant]
     Dosage: 10 MG, UNK
  5. CARDILOL//ATENOLOL [Concomitant]
     Dosage: 6.25 MG, UNK
  6. HIGROTON [Concomitant]
     Dosage: 25 MG, UNK
  7. MONOCORDIL [Concomitant]
     Dosage: 20 MG, UNK
  8. ASPIRIN [Concomitant]

REACTIONS (5)
  - Cerebrovascular accident [Unknown]
  - Ulcer [Unknown]
  - Blood pressure increased [Unknown]
  - Cardiomyopathy [Unknown]
  - Malaise [Unknown]
